FAERS Safety Report 4781479-2 (Version None)
Quarter: 2005Q3

REPORT INFORMATION
  Report Type: 
  Country: None (occurrence: None)
  Receive Date: 20050927
  Receipt Date: 20050914
  Transmission Date: 20060218
  Serious: Yes (Hospitalization)
  Sender: FDA-Public Use
  Company Number: 2005128821

PATIENT
  Age: 15 Year
  Sex: Male
  Weight: 59 kg

DRUGS (1)
  1. GENOTROPIN [Suspect]
     Indication: HYPOPITUITARISM
     Dosage: (1.7 MG) SUBCUTANEOUS
     Route: 058
     Dates: start: 20021027, end: 20050627

REACTIONS (4)
  - ABNORMAL BEHAVIOUR [None]
  - EDUCATIONAL PROBLEM [None]
  - NEGLECT OF PERSONAL APPEARANCE [None]
  - SCHIZOPHRENIA, PARANOID TYPE [None]
